FAERS Safety Report 25153935 (Version 2)
Quarter: 2025Q2

REPORT INFORMATION
  Report Type: Spontaneous
  Country: US (occurrence: US)
  Receive Date: 20250403
  Receipt Date: 20250417
  Transmission Date: 20250717
  Serious: Yes (Other)
  Sender: BAUSCH AND LOMB
  Company Number: US-BAUSCHBL-2025BNL005364

PATIENT
  Sex: Female

DRUGS (2)
  1. BLINK GEL TEARS [Suspect]
     Active Substance: POLYETHYLENE GLYCOL 400
     Indication: Product used for unknown indication
     Route: 065
  2. DIETARY SUPPLEMENT [Suspect]
     Active Substance: DIETARY SUPPLEMENT
     Indication: Product used for unknown indication
     Route: 065

REACTIONS (6)
  - Cataract [Unknown]
  - Vision blurred [Unknown]
  - Asthenopia [Unknown]
  - Drug ineffective for unapproved indication [Unknown]
  - Cataract operation [Unknown]
  - Wrong technique in product usage process [Unknown]
